FAERS Safety Report 25063428 (Version 1)
Quarter: 2025Q1

REPORT INFORMATION
  Report Type: Spontaneous
  Country: CA (occurrence: CA)
  Receive Date: 20250311
  Receipt Date: 20250311
  Transmission Date: 20250409
  Serious: Yes (Other)
  Sender: PFIZER
  Company Number: CA-PFIZER INC-202500051922

PATIENT
  Age: 10 Year
  Sex: Male

DRUGS (9)
  1. MIDAZOLAM [Suspect]
     Active Substance: MIDAZOLAM
     Indication: Central venous catheterisation
     Route: 042
  2. ACETAMINOPHEN [Concomitant]
     Active Substance: ACETAMINOPHEN
  3. AMOXICILLIN/CINEOLE/CLAVULANIC ACID [Concomitant]
  4. CEFOTAXIME [Concomitant]
     Active Substance: CEFOTAXIME SODIUM
  5. CLOXACILLIN [Concomitant]
     Active Substance: CLOXACILLIN
  6. IBUPROFEN [Concomitant]
     Active Substance: IBUPROFEN
  7. METRONIDAZOLE [Concomitant]
     Active Substance: METRONIDAZOLE
  8. MOMETASONE FUROATE [Concomitant]
     Active Substance: MOMETASONE FUROATE
  9. OXYMETAZOLINE HYDROCHLORIDE [Concomitant]
     Active Substance: OXYMETAZOLINE HYDROCHLORIDE

REACTIONS (5)
  - Agitation [Unknown]
  - Altered state of consciousness [Unknown]
  - Hypertension [Unknown]
  - Paradoxical drug reaction [Unknown]
  - Tachycardia [Unknown]
